FAERS Safety Report 7052350-0 (Version None)
Quarter: 2010Q4

REPORT INFORMATION
  Report Type: 
  Country: None (occurrence: None)
  Receive Date: 20101019
  Receipt Date: 20101018
  Transmission Date: 20110411
  Serious: Yes (Other)
  Sender: FDA-Public Use
  Company Number: US-CEPHALON-2010004904

PATIENT
  Sex: Female
  Weight: 82 kg

DRUGS (3)
  1. NUVIGIL [Suspect]
     Indication: NARCOLEPSY
     Route: 048
     Dates: start: 20100701, end: 20100910
  2. MIRTAZAPINE [Concomitant]
     Indication: HEADACHE
     Route: 048
     Dates: start: 20100401
  3. NEURONTIN [Concomitant]
     Indication: BACK PAIN
     Dates: start: 20090101

REACTIONS (7)
  - AGGRESSION [None]
  - ANGER [None]
  - DEPRESSION [None]
  - HALLUCINATION [None]
  - MANIA [None]
  - PARALYSIS [None]
  - SUICIDAL IDEATION [None]
